FAERS Safety Report 5701819-7 (Version None)
Quarter: 2008Q2

REPORT INFORMATION
  Report Type: 
  Country: None (occurrence: None)
  Receive Date: 20080408
  Receipt Date: 20080402
  Transmission Date: 20081010
  Serious: Yes (Death)
  Sender: FDA-Public Use
  Company Number: 163-21880-08010094

PATIENT
  Age: 87 Year
  Sex: Male

DRUGS (9)
  1. REVLIMID [Suspect]
     Indication: MYELODYSPLASTIC SYNDROME
     Dosage: 25 MG, DAILY, ORAL
     Route: 048
     Dates: start: 20071212, end: 20071201
  2. EXJADE [Concomitant]
  3. COREG [Concomitant]
  4. LANOXIN [Concomitant]
  5. LASIX [Concomitant]
  6. BICARBONATE (SODIUM BICARBONATE) [Concomitant]
  7. CARDURA [Concomitant]
  8. ISMO (ISOSORBIDE MONOITRATE) [Concomitant]
  9. ASPIRIN [Concomitant]

REACTIONS (4)
  - ARTERIOSCLEROSIS CORONARY ARTERY [None]
  - CARDIAC DISORDER [None]
  - DRUG DOSE OMISSION [None]
  - SUDDEN DEATH [None]
